FAERS Safety Report 20672024 (Version 1)
Quarter: 2022Q2

REPORT INFORMATION
  Report Type: Spontaneous
  Country: IE (occurrence: IE)
  Receive Date: 20220405
  Receipt Date: 20220405
  Transmission Date: 20220721
  Serious: Yes (Disabling, Other)
  Sender: FDA-Public Use
  Company Number: IE-Zentiva-2022-ZT-001622

PATIENT
  Sex: Male

DRUGS (1)
  1. PREGABALIN [Suspect]
     Active Substance: PREGABALIN
     Indication: Maternal exposure timing unspecified
     Dosage: UNK
     Route: 048

REACTIONS (7)
  - Maternal exposure during delivery [Recovered/Resolved]
  - Maternal exposure during pregnancy [Recovered/Resolved]
  - Maternal exposure during pregnancy [Recovered/Resolved]
  - Developmental delay [Recovered/Resolved]
  - Maternal exposure during pregnancy [Recovered/Resolved]
  - Motor developmental delay [Recovered/Resolved]
  - Maternal exposure during breast feeding [Recovered/Resolved]
